FAERS Safety Report 21683854 (Version 1)
Quarter: 2022Q4

REPORT INFORMATION
  Report Type: Spontaneous
  Country: US (occurrence: None)
  Receive Date: 20221204
  Receipt Date: 20221204
  Transmission Date: 20230113
  Serious: Yes (Death, Life-Threatening, Hospitalization, Other)
  Sender: FDA-Public Use
  Company Number: None

PATIENT
  Age: 76 Year
  Sex: Male
  Weight: 99 kg

DRUGS (1)
  1. KEYTRUDA [Suspect]
     Active Substance: PEMBROLIZUMAB
     Indication: Non-small cell lung cancer
     Dates: start: 20210804, end: 20211028

REACTIONS (11)
  - Cardiomegaly [None]
  - Renal disorder [None]
  - Product complaint [None]
  - Multi-organ disorder [None]
  - Rash maculo-papular [None]
  - Rash [None]
  - Transfusion [None]
  - Anaphylactic reaction [None]
  - Infusion related reaction [None]
  - Cardiac failure [None]
  - Victim of crime [None]

NARRATIVE: CASE EVENT DATE: 20210810
